FAERS Safety Report 20831711 (Version 1)
Quarter: 2022Q2

REPORT INFORMATION
  Report Type: Report from Study
  Country: US (occurrence: None)
  Receive Date: 20220516
  Receipt Date: 20220516
  Transmission Date: 20220721
  Serious: Yes (Hospitalization, Other)
  Sender: FDA-Public Use
  Company Number: US-ROCHE-2432180

PATIENT
  Age: 58 Year
  Sex: Female
  Weight: 97.3 kg

DRUGS (1)
  1. ATEZOLIZUMAB [Suspect]
     Active Substance: ATEZOLIZUMAB
     Indication: Cholangiocarcinoma
     Dosage: DATE OF MOST RECENT DOSE (840 MG) OF ATEZOLIZUMAB PRIOR TO AE: 19/SEP/2018?DATE OF MOST RECENT DOSE
     Route: 041
     Dates: start: 20180919

REACTIONS (6)
  - Anaemia [Unknown]
  - Lymphocyte count decreased [Unknown]
  - Hepatobiliary disease [Unknown]
  - Blood bilirubin increased [Unknown]
  - Hypotension [Recovered/Resolved]
  - Presyncope [Recovered/Resolved]

NARRATIVE: CASE EVENT DATE: 20181004
